FAERS Safety Report 4872523-2 (Version None)
Quarter: 2005Q4

REPORT INFORMATION
  Report Type: 
  Country: None (occurrence: None)
  Receive Date: 20051230
  Receipt Date: 20051230
  Transmission Date: 20060501
  Serious: Yes (Other)
  Sender: FDA-Public Use
  Company Number: None

PATIENT
  Age: 81 Year
  Sex: Female
  Weight: 71.2147 kg

DRUGS (1)
  1. REQUIP [Suspect]
     Indication: RESTLESS LEGS SYNDROME
     Dosage: 1 TABLET DAILY PO
     Route: 048
     Dates: start: 20051216, end: 20051217

REACTIONS (3)
  - PAIN [None]
  - PAIN IN EXTREMITY [None]
  - RASH ERYTHEMATOUS [None]
